FAERS Safety Report 4630389-X (Version None)
Quarter: 2005Q2

REPORT INFORMATION
  Report Type: 
  Country: None (occurrence: None)
  Receive Date: 20050406
  Receipt Date: 20050318
  Transmission Date: 20051028
  Serious: Yes (Other)
  Sender: FDA-Public Use
  Company Number: USA050393686

PATIENT
  Age: 80 Year
  Sex: Male

DRUGS (8)
  1. FORTEO [Suspect]
     Indication: OSTEOPOROSIS
     Dates: start: 20030801
  2. COUMADIN [Concomitant]
  3. CORDARONE [Concomitant]
  4. ZOLOFT [Concomitant]
  5. ALPRAZOLAM [Concomitant]
  6. VITAMINS NOS [Concomitant]
  7. CALCIUM CARBONATE + VITAMIN D [Concomitant]
  8. VITAMIN D [Concomitant]

REACTIONS (7)
  - ANOREXIA [None]
  - ARRHYTHMIA [None]
  - ASTHENIA [None]
  - FATIGUE [None]
  - FEELING ABNORMAL [None]
  - PHARMACEUTICAL PRODUCT COMPLAINT [None]
  - WEIGHT DECREASED [None]
